FAERS Safety Report 7845717 (Version 2)
Quarter: 2013Q3

REPORT INFORMATION
  Report Type: Spontaneous
  Country: US (occurrence: US)
  Receive Date: 20110308
  Receipt Date: 20130802
  Transmission Date: 20140515
  Serious: Yes (Death, Hospitalization, Other)
  Sender: FDA-Public Use
  Company Number: US-ROCHE-670625

PATIENT
  Age: 58 Year
  Sex: Female

DRUGS (2)
  1. TAMIFLU [Suspect]
     Indication: H1N1 INFLUENZA
     Route: 065
  2. TAMIFLU [Suspect]
     Route: 065

REACTIONS (3)
  - Bone marrow failure [Fatal]
  - Pathogen resistance [Recovered/Resolved]
  - Drug ineffective [Unknown]
